FAERS Safety Report 4288562-9 (Version None)
Quarter: 2004Q1

REPORT INFORMATION
  Report Type: 
  Country: None (occurrence: None)
  Receive Date: 20040205
  Receipt Date: 20040202
  Transmission Date: 20041129
  Serious: Yes (Disabling)
  Sender: FDA-Public Use
  Company Number: 2004UW00495

PATIENT
  Age: 72 Year
  Sex: Female
  Weight: 50.8029 kg

DRUGS (1)
  1. SEROQUEL [Suspect]
     Indication: PSYCHOTIC DISORDER
     Dosage: 350 MG DAILY PO
     Route: 048
     Dates: start: 20031001

REACTIONS (3)
  - ABASIA [None]
  - DYSSTASIA [None]
  - MUSCULAR WEAKNESS [None]
